FAERS Safety Report 7525397-5 (Version None)
Quarter: 2011Q2

REPORT INFORMATION
  Report Type: 
  Country: None (occurrence: None)
  Receive Date: 20110526
  Receipt Date: 20110513
  Transmission Date: 20111010
  Serious: Yes (Other)
  Sender: FDA-Public Use
  Company Number: 2011MA005888

PATIENT
  Age: 50 Year
  Sex: Female

DRUGS (1)
  1. RIFAMPIN [Suspect]
     Dosage: 300 MG;QD

REACTIONS (2)
  - DRUG LEVEL DECREASED [None]
  - ACUTE GRAFT VERSUS HOST DISEASE IN SKIN [None]
